FAERS Safety Report 12631511 (Version 2)
Quarter: 2016Q3

REPORT INFORMATION
  Report Type: Spontaneous
  Country: US (occurrence: US)
  Receive Date: 20160808
  Receipt Date: 20160808
  Transmission Date: 20161109
  Serious: No
  Sender: FDA-Public Use
  Company Number: US-BEH-2015054390

PATIENT
  Sex: Male
  Weight: 88 kg

DRUGS (24)
  1. SINGULAIR [Concomitant]
     Active Substance: MONTELUKAST SODIUM
  2. SYMBICORT [Concomitant]
     Active Substance: BUDESONIDE\FORMOTEROL FUMARATE DIHYDRATE
  3. ASPIRIN. [Concomitant]
     Active Substance: ASPIRIN
  4. DIPHENHYDRAMINE. [Concomitant]
     Active Substance: DIPHENHYDRAMINE
  5. FISH OIL [Concomitant]
     Active Substance: FISH OIL
  6. PREDNISONE. [Concomitant]
     Active Substance: PREDNISONE
  7. FINASTERIDE. [Concomitant]
     Active Substance: FINASTERIDE
  8. VITAMIN D [Concomitant]
     Active Substance: CHOLECALCIFEROL
  9. ACETAMINOPHEN. [Concomitant]
     Active Substance: ACETAMINOPHEN
  10. EPIPEN [Concomitant]
     Active Substance: EPINEPHRINE
     Indication: ANAPHYLACTIC REACTION
  11. KLOR-CON [Concomitant]
     Active Substance: POTASSIUM CHLORIDE
  12. CALCIUM [Concomitant]
     Active Substance: CALCIUM
  13. ASTEPRO [Concomitant]
     Active Substance: AZELASTINE HYDROCHLORIDE
  14. HIZENTRA [Suspect]
     Active Substance: HUMAN IMMUNOGLOBULIN G
     Indication: IMMUNODEFICIENCY COMMON VARIABLE
     Dosage: 2 GM 10 ML VIAL
     Route: 058
  15. VITAMIN C [Concomitant]
     Active Substance: ASCORBIC ACID
  16. SIMVASTATIN. [Concomitant]
     Active Substance: SIMVASTATIN
  17. ACTONEL [Concomitant]
     Active Substance: RISEDRONATE SODIUM
  18. MULTIVITAMINS [Concomitant]
     Active Substance: VITAMINS
  19. HIZENTRA [Suspect]
     Active Substance: HUMAN IMMUNOGLOBULIN G
     Dosage: 10 GM 50 ML VIAL
     Route: 058
  20. LIDOCAINE. [Concomitant]
     Active Substance: LIDOCAINE
  21. ZANTAC [Concomitant]
     Active Substance: RANITIDINE HYDROCHLORIDE
  22. LORAZEPAM. [Concomitant]
     Active Substance: LORAZEPAM
  23. PROAIR HFA [Concomitant]
     Active Substance: ALBUTEROL SULFATE
  24. BENICAR [Concomitant]
     Active Substance: OLMESARTAN MEDOXOMIL

REACTIONS (3)
  - Headache [Unknown]
  - Dizziness [Unknown]
  - Somnolence [Unknown]
